FAERS Safety Report 14947227 (Version 6)
Quarter: 2019Q3

REPORT INFORMATION
  Report Type: Report from Study
  Country: FR (occurrence: FR)
  Receive Date: 20180529
  Receipt Date: 20190927
  Transmission Date: 20191004
  Serious: Yes (Life-Threatening, Hospitalization, Other)
  Sender: FDA-Public Use
  Company Number: FR-JNJFOC-20160926432

PATIENT
  Age: 66 Year
  Sex: Male
  Weight: 138 kg

DRUGS (33)
  1. HYTACAND [Suspect]
     Active Substance: CANDESARTAN CILEXETIL\HYDROCHLOROTHIAZIDE
     Indication: PRODUCT USED FOR UNKNOWN INDICATION
     Route: 048
  2. ATACAND [Suspect]
     Active Substance: CANDESARTAN CILEXETIL
     Indication: PRODUCT USED FOR UNKNOWN INDICATION
     Route: 048
  3. MACROGOL 4000 [Concomitant]
     Active Substance: POLYETHYLENE GLYCOL 4000
     Route: 065
     Dates: start: 20180430
  4. ENBREL [Suspect]
     Active Substance: ETANERCEPT
     Indication: PSORIASIS
     Dosage: TOTAL 100 MG
     Route: 058
     Dates: start: 201305, end: 20160216
  5. PARACETAMOL [Concomitant]
     Active Substance: ACETAMINOPHEN
     Route: 048
  6. DAIVOBET [Concomitant]
     Active Substance: BETAMETHASONE DIPROPIONATE\CALCIPOTRIENE
     Route: 065
  7. BURINEX [Concomitant]
     Active Substance: BUMETANIDE
     Route: 065
     Dates: start: 20180430, end: 20190628
  8. TALTZ [Suspect]
     Active Substance: IXEKIZUMAB
     Indication: PSORIASIS
     Route: 058
     Dates: start: 20180820
  9. AERIUS [Concomitant]
     Route: 048
  10. COSOPT [Concomitant]
     Active Substance: DORZOLAMIDE HYDROCHLORIDE\TIMOLOL MALEATE
     Dosage: 1DROP/D IN RIGHT EYE
     Route: 047
  11. COUMADINE [Concomitant]
     Active Substance: WARFARIN SODIUM
     Route: 048
     Dates: end: 20190803
  12. TARDYFERON [Concomitant]
     Active Substance: FERROUS SULFATE
     Route: 065
  13. ALDACTONE [Concomitant]
     Active Substance: SPIRONOLACTONE
     Route: 065
     Dates: start: 20180430, end: 20190828
  14. ALLOPURINOL                        /00003302/ [Concomitant]
     Active Substance: ALLOPURINOL
     Route: 065
     Dates: end: 20190803
  15. FUROSEMIDE. [Concomitant]
     Active Substance: FUROSEMIDE
     Route: 065
     Dates: start: 20180130, end: 20190803
  16. LASILIX [Suspect]
     Active Substance: FUROSEMIDE
     Indication: PRODUCT USED FOR UNKNOWN INDICATION
     Route: 048
  17. FORLAX [Concomitant]
     Active Substance: POLYETHYLENE GLYCOL 4000
     Route: 065
  18. LAMISIL [Concomitant]
     Active Substance: TERBINAFINE HYDROCHLORIDE
     Route: 065
  19. LASILIX [Concomitant]
     Active Substance: FUROSEMIDE
     Route: 065
  20. LANSOPRAZOLE. [Concomitant]
     Active Substance: LANSOPRAZOLE
     Route: 065
     Dates: start: 20180130, end: 20190803
  21. INEXIUM [Concomitant]
     Active Substance: ESOMEPRAZOLE
     Route: 065
  22. STELARA [Suspect]
     Active Substance: USTEKINUMAB
     Route: 058
     Dates: start: 20160316, end: 20180820
  23. MOPRAL [Concomitant]
     Active Substance: OMEPRAZOLE
     Route: 048
  24. DUOTRAV [Concomitant]
     Active Substance: TIMOLOL MALEATE\TRAVOPROST
     Dosage: 1DROP/D IN RIGHT EYE
     Route: 047
  25. AMLOR [Concomitant]
     Active Substance: AMLODIPINE BESYLATE
     Route: 048
     Dates: end: 20190803
  26. NOVORAPID [Concomitant]
     Active Substance: INSULIN ASPART
     Route: 065
     Dates: start: 20190801
  27. XATRAL                             /00975302/ [Concomitant]
     Active Substance: ALFUZOSIN HYDROCHLORIDE
     Route: 065
     Dates: start: 20190803, end: 20190803
  28. DIFFU K [Concomitant]
     Active Substance: POTASSIUM CHLORIDE
     Route: 065
     Dates: start: 20180430, end: 20190628
  29. STELARA [Suspect]
     Active Substance: USTEKINUMAB
     Indication: PSORIASIS
     Route: 058
     Dates: start: 20160216, end: 20160316
  30. TALTZ [Suspect]
     Active Substance: IXEKIZUMAB
     Route: 058
     Dates: start: 20190218
  31. METFORMINE [Concomitant]
     Active Substance: METFORMIN HYDROCHLORIDE
     Route: 048
     Dates: end: 20190628
  32. AERIUS [Concomitant]
     Route: 048
     Dates: end: 20190628
  33. INSULIN [Concomitant]
     Active Substance: INSULIN NOS
     Route: 058

REACTIONS (7)
  - Cardiac failure [Recovered/Resolved with Sequelae]
  - Diabetes mellitus inadequate control [Recovered/Resolved with Sequelae]
  - Iron deficiency anaemia [Recovering/Resolving]
  - Pneumonia [Recovered/Resolved]
  - Renal impairment [Recovered/Resolved with Sequelae]
  - Gastrointestinal angiodysplasia [Not Recovered/Not Resolved]
  - Hepatocellular carcinoma [Recovered/Resolved]

NARRATIVE: CASE EVENT DATE: 20160511
